FAERS Safety Report 5806832-7 (Version None)
Quarter: 2008Q3

REPORT INFORMATION
  Report Type: 
  Country: None (occurrence: None)
  Receive Date: 20080702
  Receipt Date: 20070614
  Transmission Date: 20090109
  Serious: Yes (Other)
  Sender: FDA-Public Use
  Company Number: PROG00207032777

PATIENT
  Age: 28 Year
  Sex: Female
  Weight: 73 kg

DRUGS (3)
  1. PROMETRIUM [Suspect]
     Indication: PRENATAL CARE
     Dosage: SEE IMAGE
     Route: 048
     Dates: start: 20070517, end: 20070101
  2. PROMETRIUM [Suspect]
     Indication: PRENATAL CARE
     Dosage: SEE IMAGE
     Route: 048
     Dates: start: 20070101
  3. PROMETRIUM [Suspect]
     Indication: PRENATAL CARE
     Dosage: SEE IMAGE
     Route: 048
     Dates: start: 20070101

REACTIONS (4)
  - BLIGHTED OVUM [None]
  - BLOOD HUMAN CHORIONIC GONADOTROPIN DECREASED [None]
  - DIZZINESS [None]
  - PROGESTERONE DECREASED [None]
